FAERS Safety Report 6810561-0 (Version None)
Quarter: 2010Q2

REPORT INFORMATION
  Report Type: 
  Country: None (occurrence: None)
  Receive Date: 20100630
  Receipt Date: 20100618
  Transmission Date: 20101027
  Serious: Yes (Hospitalization, Other)
  Sender: FDA-Public Use
  Company Number: FR-ELI_LILLY_AND_COMPANY-FR201006005096

PATIENT
  Sex: Male

DRUGS (13)
  1. GEMZAR [Suspect]
     Indication: ADENOCARCINOMA
     Dosage: UNK, WEEKLY (1/W)
     Route: 042
     Dates: start: 20090625, end: 20100128
  2. MOPRAL [Concomitant]
     Dosage: 20 MG, DAILY (1/D)
     Route: 065
  3. EUPRESSYL [Concomitant]
     Dosage: 30 MG, 6 TIMES PER DAY
     Route: 065
  4. APROVEL [Concomitant]
     Dosage: 150 MG, 2/D
     Route: 065
  5. TRIATEC [Concomitant]
     Dosage: 5 MG, 3/D
     Route: 065
  6. HYPERIUM [Concomitant]
     Dosage: 1 MG, 2/D
     Route: 065
  7. LONOTEN [Concomitant]
     Dosage: 2.5 MG, 2/D
     Route: 065
  8. CARDENSIEL [Concomitant]
     Dosage: 2.5 MG, DAILY (1/D)
     Route: 065
  9. CALCIDIA [Concomitant]
     Dosage: UNK, 2 BAGS PER DAY
     Route: 065
  10. ZOLPIDEM [Concomitant]
     Dosage: 1 D/F, DAILY (1/D)
     Route: 065
  11. CONTRAMAL [Concomitant]
     Dosage: 100 MG, 2/D
     Route: 065
  12. FOSRENOL [Concomitant]
     Dosage: 500 MG, 3/D
     Route: 065
  13. SYMBICORT [Concomitant]
     Dosage: 200 MG, 2/D
     Route: 065

REACTIONS (6)
  - HAEMOLYTIC URAEMIC SYNDROME [None]
  - HEADACHE [None]
  - HYPERTENSION [None]
  - MALIGNANT NEOPLASM PROGRESSION [None]
  - RENAL FAILURE [None]
  - RESPIRATORY DISTRESS [None]
